FAERS Safety Report 7684305-7 (Version None)
Quarter: 2011Q3

REPORT INFORMATION
  Report Type: 
  Country: None (occurrence: None)
  Receive Date: 20110815
  Receipt Date: 20110801
  Transmission Date: 20111222
  Serious: No
  Sender: FDA-Public Use
  Company Number: US-B.I. PHARMACEUTICALS,INC./RIDGEFIELD-2011-BP-18943BP

PATIENT
  Sex: Female

DRUGS (9)
  1. COMBIVENT [Suspect]
     Indication: CHRONIC OBSTRUCTIVE PULMONARY DISEASE
     Route: 055
     Dates: start: 20060101
  2. ATENOLOL [Concomitant]
     Indication: HYPERTENSION
  3. VITAMIN TAB [Concomitant]
     Indication: PROPHYLAXIS
  4. ALBUTEROL [Concomitant]
     Indication: CHRONIC OBSTRUCTIVE PULMONARY DISEASE
  5. AGGRENOX [Concomitant]
     Indication: CEREBROVASCULAR ACCIDENT
  6. ALBUTEROL [Concomitant]
     Indication: ASTHMA
  7. PREDNISONE [Concomitant]
     Indication: ASTHMA
  8. PREDNISONE [Concomitant]
     Indication: CHRONIC OBSTRUCTIVE PULMONARY DISEASE
  9. COMBIVENT [Suspect]
     Indication: ASTHMA

REACTIONS (1)
  - DRUG INEFFECTIVE [None]
